FAERS Safety Report 13201203 (Version 3)
Quarter: 2017Q1

REPORT INFORMATION
  Report Type: Report from Study
  Country: CA (occurrence: CA)
  Receive Date: 20170209
  Receipt Date: 20170314
  Transmission Date: 20170428
  Serious: Yes (Hospitalization, Disabling, Other)
  Sender: FDA-Public Use
  Company Number: CA-BRISTOL-MYERS SQUIBB COMPANY-BMS-2017-000681

PATIENT
  Age: 48 Year
  Sex: Female

DRUGS (2)
  1. DACLATASVIR DIHYDROCHLORIDE [Suspect]
     Active Substance: DACLATASVIR DIHYDROCHLORIDE
     Indication: HEPATITIS C
     Dosage: 60 MG, QD
     Route: 048
     Dates: start: 20161222, end: 20170106
  2. SOVALDI [Concomitant]
     Active Substance: SOFOSBUVIR
     Indication: PRODUCT USED FOR UNKNOWN INDICATION
     Dosage: 400 MG, QD
     Route: 048
     Dates: start: 20161222

REACTIONS (7)
  - Face oedema [Recovering/Resolving]
  - Toxicity to various agents [Unknown]
  - Oedema peripheral [Recovering/Resolving]
  - Confusional state [Recovering/Resolving]
  - Cellulitis [Unknown]
  - Hepatitis alcoholic [Unknown]
  - Fall [Unknown]

NARRATIVE: CASE EVENT DATE: 20161222
